FAERS Safety Report 13951969 (Version 4)
Quarter: 2018Q1

REPORT INFORMATION
  Report Type: Spontaneous
  Country: JP (occurrence: JP)
  Receive Date: 20170910
  Receipt Date: 20180327
  Transmission Date: 20180508
  Serious: Yes (Other)
  Sender: FDA-Public Use
  Company Number: JP-AMGEN-JPNSP2017136530

PATIENT
  Age: 90 Year
  Sex: Male
  Weight: 46 kg

DRUGS (12)
  1. CRESTOR [Concomitant]
     Active Substance: ROSUVASTATIN CALCIUM
     Dosage: UNK
     Route: 065
  2. BAYASPIRIN [Concomitant]
     Active Substance: ASPIRIN
     Dosage: UNK
     Route: 065
  3. DECADRON [Suspect]
     Active Substance: DEXAMETHASONE
     Indication: PRODUCT USED FOR UNKNOWN INDICATION
     Dosage: UNK
     Route: 065
  4. TAMSULOSIN HYDROCHLORIDE. [Concomitant]
     Active Substance: TAMSULOSIN HYDROCHLORIDE
     Dosage: UNK
     Route: 065
  5. LOXONIN [Concomitant]
     Active Substance: LOXOPROFEN SODIUM
     Dosage: UNK
     Route: 065
  6. RANMARK [Suspect]
     Active Substance: DENOSUMAB
     Indication: BONE LESION
     Dosage: 120 MG, Q4WK
     Route: 058
     Dates: start: 20150612, end: 20170830
  7. XYLOCAINE [Concomitant]
     Active Substance: LIDOCAINE HYDROCHLORIDE
     Indication: LOCAL ANAESTHESIA
     Dosage: 1.8 ML, QD
     Route: 065
     Dates: start: 20170727
  8. PROSEXOL [Concomitant]
     Active Substance: ETHINYL ESTRADIOL
     Dosage: UNK
     Route: 065
  9. SELARA [Concomitant]
     Active Substance: EPLERENONE
     Dosage: UNK
     Route: 065
  10. REBAMIPIDE [Concomitant]
     Active Substance: REBAMIPIDE
     Dosage: UNK
     Route: 065
  11. RANMARK [Suspect]
     Active Substance: DENOSUMAB
     Indication: METASTASES TO BONE
  12. FAMOTIDINE. [Concomitant]
     Active Substance: FAMOTIDINE
     Dosage: UNK
     Route: 065

REACTIONS (2)
  - Periodontitis [Unknown]
  - Osteonecrosis of jaw [Not Recovered/Not Resolved]

NARRATIVE: CASE EVENT DATE: 201708
